FAERS Safety Report 6114091-3 (Version None)
Quarter: 2009Q1

REPORT INFORMATION
  Report Type: 
  Country: None (occurrence: None)
  Receive Date: 20090312
  Receipt Date: 20080404
  Transmission Date: 20090719
  Serious: No
  Sender: FDA-Public Use
  Company Number: US-ABBOTT-08P-163-0439849-00

PATIENT
  Age: 18 Year
  Sex: Female
  Weight: 64.922 kg

DRUGS (9)
  1. DEPAKOTE [Suspect]
     Indication: CONVULSION
     Route: 048
     Dates: start: 20080126, end: 20080214
  2. DEPAKOTE [Suspect]
     Indication: MYOCLONUS
     Route: 048
     Dates: start: 20080214, end: 20080219
  3. DEPAKOTE [Suspect]
     Dosage: 1500 MG AM AND PM AND 1000MG AT NOON (UNIT DOSE)
     Dates: start: 20080219
  4. MERREN [Interacting]
     Indication: URINARY TRACT INFECTION
     Route: 042
     Dates: start: 20080212, end: 20080219
  5. METRONIDAZOLE HCL [Concomitant]
     Indication: CLOSTRIDIAL INFECTION
     Route: 042
     Dates: start: 20080114, end: 20080128
  6. VANCOMYCIN [Concomitant]
     Indication: CLOSTRIDIAL INFECTION
     Route: 042
     Dates: start: 20080210
  7. GENTAMYCIN SULFATE [Concomitant]
     Indication: URINARY TRACT INFECTION
     Route: 042
     Dates: start: 20080123
  8. LORAZEPAM [Concomitant]
     Indication: CONVULSION PROPHYLAXIS
     Route: 042
     Dates: start: 20080126
  9. LORAZEPAM [Concomitant]
     Indication: MYOCLONUS

REACTIONS (2)
  - ANTICONVULSANT DRUG LEVEL BELOW THERAPEUTIC [None]
  - DRUG INTERACTION [None]
